FAERS Safety Report 18331669 (Version 1)
Quarter: 2020Q3

REPORT INFORMATION
  Report Type: Report from Study
  Country: HU (occurrence: HU)
  Receive Date: 20200930
  Receipt Date: 20200930
  Transmission Date: 20201103
  Serious: Yes (Other)
  Sender: FDA-Public Use
  Company Number: HU-JNJFOC-20200715461

PATIENT
  Age: 78 Year
  Sex: Male
  Weight: 87 kg

DRUGS (2)
  1. FUROSEMIDE. [Concomitant]
     Active Substance: FUROSEMIDE
     Indication: OEDEMA
     Route: 048
     Dates: start: 201911
  2. STELARA [Suspect]
     Active Substance: USTEKINUMAB
     Indication: PSORIASIS
     Dosage: PATIENT WAS ADMINISTERED HIS PREVIOUS STELARA INJECTION ON 25?JUN?2020
     Route: 058
     Dates: start: 20200528

REACTIONS (3)
  - Prostatomegaly [Unknown]
  - Phimosis [Unknown]
  - Cystitis [Recovered/Resolved]
